FAERS Safety Report 6712757-5 (Version None)
Quarter: 2010Q2

REPORT INFORMATION
  Report Type: 
  Country: None (occurrence: None)
  Receive Date: 20100506
  Receipt Date: 20100427
  Transmission Date: 20101027
  Serious: Yes (Hospitalization, Other)
  Sender: FDA-Public Use
  Company Number: US-ELI_LILLY_AND_COMPANY-US201004007711

PATIENT
  Sex: Male

DRUGS (15)
  1. GEMCITABINE HCL [Suspect]
     Indication: PANCREATIC CARCINOMA
     Dosage: 1000 MG/M2, OTHER
     Dates: start: 20100226
  2. GLIMEPIRIDE [Concomitant]
     Indication: DIABETES MELLITUS
     Dosage: 8 MG, UNK
     Route: 048
     Dates: start: 20091001
  3. METOPROLOL [Concomitant]
     Indication: HYPERTENSION
     Dosage: 200 MG, UNK
     Route: 048
     Dates: start: 19980101
  4. SENNA [Concomitant]
     Indication: CONSTIPATION
     Dosage: 2 D/F, EACH EVENING
     Route: 048
     Dates: start: 20100121
  5. TYLENOL                                 /SCH/ [Concomitant]
     Indication: PAIN
     Dosage: 650 MG, AS NEEDED
     Route: 048
     Dates: start: 20100121
  6. AMBIEN [Concomitant]
     Indication: INSOMNIA
     Dosage: 10 MG, EACH EVENING
     Route: 048
     Dates: start: 20090219
  7. MIRALAX [Concomitant]
     Indication: CONSTIPATION
     Dosage: 17 G, UNK
     Route: 048
     Dates: start: 20100201
  8. PAXIL [Concomitant]
     Indication: ANXIETY
     Dosage: 20 MG, UNK
     Route: 048
     Dates: start: 20100305
  9. EMLA [Concomitant]
     Indication: ANALGESIC THERAPY
     Dosage: UNK, AS NEEDED
     Route: 061
     Dates: start: 20100219
  10. LORAZEPAM [Concomitant]
     Indication: ANXIETY
     Dosage: 1 MG, EVERY 8 HRS
     Route: 048
     Dates: start: 20100219
  11. INSULIN [Concomitant]
     Indication: DIABETES MELLITUS
     Route: 058
  12. COMPAZINE [Concomitant]
     Indication: NAUSEA
     Dosage: 10 MG, AS NEEDED
     Route: 048
     Dates: start: 20100226
  13. ONDANSETRON [Concomitant]
     Indication: NAUSEA
     Dosage: 8 MG, AS NEEDED
     Route: 048
     Dates: start: 20100226
  14. RITALIN [Concomitant]
     Indication: FATIGUE
     Dosage: 10 MG, UNK
     Route: 048
     Dates: start: 20100312
  15. PANCREASE MT 20 [Concomitant]
     Indication: DYSPEPSIA
     Route: 048
     Dates: start: 20100219

REACTIONS (1)
  - PULMONARY EMBOLISM [None]
